FAERS Safety Report 5313721-3 (Version None)
Quarter: 2007Q2

REPORT INFORMATION
  Report Type: 
  Country: None (occurrence: None)
  Receive Date: 20070425
  Receipt Date: 20070413
  Transmission Date: 20071010
  Serious: Yes (Other)
  Sender: FDA-Public Use
  Company Number: 6031797

PATIENT
  Age: 49 Year
  Sex: Female

DRUGS (3)
  1. PRAVASTATIN [Suspect]
     Indication: HYPERCHOLESTEROLAEMIA
     Dosage: SEE IMAGE
     Route: 048
     Dates: start: 20060101, end: 20061001
  2. PRAVASTATIN [Suspect]
     Indication: HYPERCHOLESTEROLAEMIA
     Dosage: SEE IMAGE
     Route: 048
     Dates: start: 20070201
  3. SORTIS (TABLET) (ATORVASTATIN) [Concomitant]

REACTIONS (9)
  - BLOOD ALBUMIN INCREASED [None]
  - GLOSSODYNIA [None]
  - IMMUNOGLOBULINS DECREASED [None]
  - LARYNGEAL OEDEMA [None]
  - MYOSCLEROSIS [None]
  - PARAESTHESIA ORAL [None]
  - PERICARDIAL EFFUSION [None]
  - SENSATION OF FOREIGN BODY [None]
  - TRANSAMINASES INCREASED [None]
